FAERS Safety Report 20436515 (Version 1)
Quarter: 2022Q1

REPORT INFORMATION
  Report Type: Spontaneous
  Country: DE (occurrence: DE)
  Receive Date: 20220207
  Receipt Date: 20220207
  Transmission Date: 20220423
  Serious: Yes (Hospitalization, Other)
  Sender: FDA-Public Use
  Company Number: DE-ABBVIE-22K-062-4264709-00

PATIENT
  Sex: Male

DRUGS (4)
  1. VALPROATE SODIUM [Suspect]
     Active Substance: VALPROATE SODIUM
     Indication: Bipolar I disorder
     Route: 048
     Dates: start: 20020314, end: 20020326
  2. NADROPARIN CALCIUM [Suspect]
     Active Substance: NADROPARIN CALCIUM
     Indication: Bipolar I disorder
     Route: 058
     Dates: start: 20020314, end: 20020326
  3. ZYPREXA [Suspect]
     Active Substance: OLANZAPINE
     Indication: Bipolar I disorder
     Route: 048
     Dates: start: 20020314, end: 20020326
  4. AMOXICILLIN\CLAVULANATE POTASSIUM [Suspect]
     Active Substance: AMOXICILLIN\CLAVULANATE POTASSIUM
     Indication: Parotitis
     Route: 048
     Dates: start: 20020322

REACTIONS (3)
  - Petechiae [Unknown]
  - Mouth haemorrhage [Unknown]
  - Thrombocytopenia [Unknown]

NARRATIVE: CASE EVENT DATE: 20020323
